FAERS Safety Report 16592163 (Version 1)
Quarter: 2019Q3

REPORT INFORMATION
  Report Type: Spontaneous
  Country: ZA (occurrence: ZA)
  Receive Date: 20190718
  Receipt Date: 20190718
  Transmission Date: 20191004
  Serious: Yes (Other)
  Sender: FDA-Public Use
  Company Number: ZA-PFIZER INC-2019304365

PATIENT
  Age: 2 Month
  Sex: Male

DRUGS (1)
  1. BICILLIN L-A [Suspect]
     Active Substance: PENICILLIN G BENZATHINE
     Indication: RESPIRATORY TRACT INFECTION
     Dosage: UNK (0.6 MILLION OF IU, 2 ML, BUTTOCK L)
     Route: 013

REACTIONS (1)
  - Embolia cutis medicamentosa [Recovering/Resolving]
